FAERS Safety Report 16800968 (Version 1)
Quarter: 2020Q3

REPORT INFORMATION
  Report Type: Report from Study
  Country: CN (occurrence: CN)
  Receive Date: 20190912
  Receipt Date: 20190912
  Transmission Date: 20201105
  Serious: Yes (Hospitalization)
  Sender: FDA-Public Use
  Company Number: CN-JNJFOC-20190736905

PATIENT
  Age: 57 Year
  Sex: Male
  Weight: 66 kg

DRUGS (13)
  1. DARATUMUMAB [Suspect]
     Active Substance: DARATUMUMAB
     Route: 058
     Dates: start: 20190829, end: 20190829
  2. BORTEZOMIB. [Suspect]
     Active Substance: BORTEZOMIB
     Dosage: MED KIT NO: 211258703
     Route: 058
     Dates: start: 20190822, end: 20190822
  3. DARATUMUMAB [Suspect]
     Active Substance: DARATUMUMAB
     Indication: AMYLOIDOSIS
     Dosage: MED KIT NO: 96752
     Route: 058
     Dates: start: 20190701, end: 20190715
  4. CYCLOPHOSPHAMIDE. [Suspect]
     Active Substance: CYCLOPHOSPHAMIDE
     Route: 042
     Dates: start: 20190708, end: 20190715
  5. LEUCOGEN [Concomitant]
     Active Substance: LEUCOGEN
  6. BORTEZOMIB. [Suspect]
     Active Substance: BORTEZOMIB
     Route: 058
     Dates: start: 20190829, end: 20190829
  7. DEXAMETHASONE. [Suspect]
     Active Substance: DEXAMETHASONE
     Indication: AMYLOIDOSIS
     Route: 042
     Dates: start: 20190702, end: 20190716
  8. BORTEZOMIB. [Suspect]
     Active Substance: BORTEZOMIB
     Indication: AMYLOIDOSIS
     Dosage: MED KIT NO: 85177961
     Route: 058
     Dates: start: 20190701, end: 20190715
  9. CYCLOPHOSPHAMIDE. [Suspect]
     Active Substance: CYCLOPHOSPHAMIDE
     Indication: AMYLOIDOSIS
     Route: 042
     Dates: start: 20190701
  10. CECLOR [Concomitant]
     Active Substance: CEFACLOR
     Indication: URINARY TRACT INFECTION
     Route: 048
     Dates: start: 20190715, end: 20190721
  11. BENIDIPINE HYDROCHLORIDE [Concomitant]
     Active Substance: BENIDIPINE HYDROCHLORIDE
  12. VALSARTAN. [Concomitant]
     Active Substance: VALSARTAN
  13. DARATUMUMAB [Suspect]
     Active Substance: DARATUMUMAB
     Dosage: MED KIT NO: 420107
     Route: 058
     Dates: start: 20190822, end: 20190822

REACTIONS (1)
  - Pyelonephritis acute [Recovered/Resolved]

NARRATIVE: CASE EVENT DATE: 20190721
